FAERS Safety Report 9129183 (Version 2)
Quarter: 2013Q1

REPORT INFORMATION
  Report Type: Spontaneous
  Country: JP (occurrence: JP)
  Receive Date: 20130228
  Receipt Date: 20130308
  Transmission Date: 20140127
  Serious: Yes (Death, Hospitalization)
  Sender: FDA-Public Use
  Company Number: JP-AMGEN-JPNSP2013013744

PATIENT
  Age: 61 Year
  Sex: Female
  Weight: 50 kg

DRUGS (6)
  1. VECTIBIX [Suspect]
     Indication: RECTAL CANCER
     Dosage: 300 MG, Q2WK
     Route: 041
     Dates: start: 20121002, end: 20121002
  2. VECTIBIX [Suspect]
     Dosage: 240 MG, Q2WK
     Route: 041
     Dates: end: 20130121
  3. IRINOTECAN HYDROCHLORIDE [Suspect]
     Indication: RECTAL CANCER
     Dosage: 170 MG, Q2WK
     Route: 041
     Dates: start: 20121002, end: 20130121
  4. 5 FU [Suspect]
     Indication: RECTAL CANCER
     Dosage: 450 MG, Q2WK
     Route: 040
     Dates: start: 20121002, end: 20130123
  5. 5 FU [Suspect]
     Dosage: 2800 MG, Q2WK
     Route: 041
     Dates: start: 20121002, end: 20130123
  6. CALCIUM LEVOFOLINATE [Suspect]
     Indication: RECTAL CANCER
     Dosage: 200 MG, Q2WK
     Route: 041
     Dates: start: 20121002, end: 20130121

REACTIONS (6)
  - Interstitial lung disease [Fatal]
  - Diarrhoea [Unknown]
  - Glossitis [Unknown]
  - Neutropenia [Unknown]
  - Stomatitis [Unknown]
  - Rash [Unknown]
